FAERS Safety Report 13176810 (Version 2)
Quarter: 2017Q1

REPORT INFORMATION
  Report Type: Report from Study
  Country: None (occurrence: US)
  Receive Date: 20170201
  Receipt Date: 20170303
  Transmission Date: 20170428
  Serious: Yes (Hospitalization, Other)
  Sender: FDA-Public Use
  Company Number: US-ABBVIE-16K-163-1804860-00

PATIENT
  Age: 55 Year
  Sex: Female
  Weight: 118.49 kg

DRUGS (23)
  1. HUMIRA [Suspect]
     Active Substance: ADALIMUMAB
     Indication: CROHN^S DISEASE
     Route: 058
     Dates: start: 2014, end: 2014
  2. HUMIRA [Suspect]
     Active Substance: ADALIMUMAB
     Route: 058
  3. PREDNISONE. [Suspect]
     Active Substance: PREDNISONE
     Dosage: WEANING DOSES
     Route: 048
     Dates: start: 201610, end: 201611
  4. BENTYL [Concomitant]
     Active Substance: DICYCLOMINE HYDROCHLORIDE
     Indication: CROHN^S DISEASE
  5. LOMOTIL [Concomitant]
     Active Substance: ATROPINE SULFATE\DIPHENOXYLATE HYDROCHLORIDE
     Indication: CROHN^S DISEASE
  6. NORVASC [Concomitant]
     Active Substance: AMLODIPINE BESYLATE
     Indication: HYPERTENSION
  7. ZYRTEC [Concomitant]
     Active Substance: CETIRIZINE HYDROCHLORIDE
     Indication: HYPERSENSITIVITY
  8. DEXILANT [Concomitant]
     Active Substance: DEXLANSOPRAZOLE
     Indication: GASTROOESOPHAGEAL REFLUX DISEASE
  9. CYMBALTA [Concomitant]
     Active Substance: DULOXETINE HYDROCHLORIDE
     Indication: PAIN
  10. PREDNISONE. [Suspect]
     Active Substance: PREDNISONE
     Route: 048
     Dates: start: 201611, end: 20161222
  11. GLIPIZIDE. [Concomitant]
     Active Substance: GLIPIZIDE
     Indication: DIABETES MELLITUS
  12. LISINOPRIL. [Concomitant]
     Active Substance: LISINOPRIL
     Indication: HYPERTENSION
  13. LEVOTHYROXINE. [Concomitant]
     Active Substance: LEVOTHYROXINE
     Indication: HYPOTHYROIDISM
  14. PREDNISONE. [Suspect]
     Active Substance: PREDNISONE
     Indication: CROHN^S DISEASE
     Dosage: TAPER
     Route: 042
     Dates: start: 201610, end: 201610
  15. PREDNISONE. [Suspect]
     Active Substance: PREDNISONE
     Route: 042
     Dates: start: 201611, end: 201611
  16. INVOKANA [Concomitant]
     Active Substance: CANAGLIFLOZIN
     Indication: DIABETES MELLITUS
  17. NPH INSULIN [Concomitant]
     Active Substance: INSULIN BEEF
     Indication: BLOOD GLUCOSE INCREASED
     Dosage: DAILY, DECREASED TO SLIDING SCALE
     Dates: start: 201610
  18. CYMBALTA [Concomitant]
     Active Substance: DULOXETINE HYDROCHLORIDE
     Indication: PYODERMA GANGRENOSUM
  19. VALIUM [Concomitant]
     Active Substance: DIAZEPAM
     Indication: ANXIETY
  20. HUMIRA [Suspect]
     Active Substance: ADALIMUMAB
     Route: 058
  21. LIALDA [Concomitant]
     Active Substance: MESALAMINE
     Indication: CROHN^S DISEASE
  22. BYDUREON [Concomitant]
     Active Substance: EXENATIDE
     Indication: DIABETES MELLITUS
  23. LOVASTATIN. [Concomitant]
     Active Substance: LOVASTATIN
     Indication: BLOOD CHOLESTEROL INCREASED

REACTIONS (6)
  - Crohn^s disease [Recovered/Resolved]
  - Gastroenteritis viral [Recovered/Resolved]
  - Cushingoid [Recovering/Resolving]
  - Blood glucose increased [Recovering/Resolving]
  - Crohn^s disease [Recovered/Resolved]
  - Generalised oedema [Recovering/Resolving]

NARRATIVE: CASE EVENT DATE: 201610
